FAERS Safety Report 7361126-6 (Version None)
Quarter: 2011Q1

REPORT INFORMATION
  Report Type: 
  Country: None (occurrence: None)
  Receive Date: 20110315
  Receipt Date: 20110315
  Transmission Date: 20110831
  Serious: Yes (Other)
  Sender: FDA-Public Use
  Company Number: None

PATIENT
  Age: 79 Year
  Sex: Female
  Weight: 67.1324 kg

DRUGS (1)
  1. MULTAQ [Suspect]
     Indication: ARRHYTHMIA
     Dosage: 2 DAILY
     Dates: start: 20101206

REACTIONS (3)
  - DIARRHOEA [None]
  - VOMITING [None]
  - FATIGUE [None]
